FAERS Safety Report 4312990-6 (Version None)
Quarter: 2004Q1

REPORT INFORMATION
  Report Type: 
  Country: None (occurrence: None)
  Receive Date: 20040305
  Receipt Date: 20040305
  Transmission Date: 20041129
  Serious: Yes (Hospitalization, Other)
  Sender: FDA-Public Use
  Company Number: None

PATIENT
  Age: 56 Year
  Sex: Female
  Weight: 65.7716 kg

DRUGS (3)
  1. NARDIL [Suspect]
     Indication: AGORAPHOBIA
     Dosage: 15 MG 6 X A DAY ORAL
     Route: 048
     Dates: start: 19880601, end: 20040209
  2. NARDIL [Suspect]
     Indication: DEPRESSION
     Dosage: 15 MG 6 X A DAY ORAL
     Route: 048
     Dates: start: 19880601, end: 20040209
  3. NARDIL [Suspect]
     Indication: PANIC DISORDER
     Dosage: 15 MG 6 X A DAY ORAL
     Route: 048
     Dates: start: 19880601, end: 20040209

REACTIONS (10)
  - ABNORMAL BEHAVIOUR [None]
  - CRYING [None]
  - DEPERSONALISATION [None]
  - DEPRESSION [None]
  - DISSOCIATION [None]
  - MEMORY IMPAIRMENT [None]
  - PAIN [None]
  - PANIC ATTACK [None]
  - PHARMACEUTICAL PRODUCT COMPLAINT [None]
  - THINKING ABNORMAL [None]
